FAERS Safety Report 18439626 (Version 1)
Quarter: 2020Q4

REPORT INFORMATION
  Report Type: Report from Study
  Country: JP (occurrence: JP)
  Receive Date: 20201029
  Receipt Date: 20201029
  Transmission Date: 20210114
  Serious: Yes (Hospitalization)
  Sender: FDA-Public Use
  Company Number: NVSJ2020JP010894

PATIENT
  Age: 44 Year
  Sex: Female
  Weight: 62.6 kg

DRUGS (6)
  1. IMATINIB TAB [Suspect]
     Active Substance: IMATINIB
     Indication: MALIGNANT MELANOMA
     Dosage: 800 MG
     Route: 048
     Dates: start: 20200826
  2. MAGNESIUM OXIDE. [Concomitant]
     Active Substance: MAGNESIUM OXIDE
     Indication: CONSTIPATION
     Dosage: 990 MG
     Route: 065
     Dates: start: 20200909, end: 20201017
  3. OXYNORM [Concomitant]
     Active Substance: OXYCODONE HYDROCHLORIDE
     Indication: CANCER PAIN
     Dosage: 2.5 MG
     Route: 065
     Dates: start: 20200909, end: 20201017
  4. LANSOPRAZOLE. [Concomitant]
     Active Substance: LANSOPRAZOLE
     Indication: PROPHYLAXIS AGAINST GASTROINTESTINAL ULCER
     Dosage: 15 MG
     Route: 065
     Dates: start: 20200909, end: 20201017
  5. NAPROXEN. [Concomitant]
     Active Substance: NAPROXEN
     Indication: CANCER PAIN
     Dosage: 100 MG 6 TIMES DAILY
     Route: 065
     Dates: start: 20200909, end: 20201017
  6. IMATINIB TAB [Suspect]
     Active Substance: IMATINIB
     Dosage: 800 MG
     Route: 048
     Dates: start: 20200909, end: 20201018

REACTIONS (1)
  - Disseminated intravascular coagulation [Unknown]

NARRATIVE: CASE EVENT DATE: 20201017
